FAERS Safety Report 14370823 (Version 1)
Quarter: 2018Q1

REPORT INFORMATION
  Report Type: Spontaneous
  Country: US (occurrence: US)
  Receive Date: 20180110
  Receipt Date: 20180110
  Transmission Date: 20180509
  Serious: No
  Sender: FDA-Public Use
  Company Number: US-PFIZER INC-2018006587

PATIENT
  Sex: Female

DRUGS (1)
  1. ADVIL PM [Suspect]
     Active Substance: DIPHENHYDRAMINE CITRATE\IBUPROFEN
     Indication: BACK DISORDER
     Dosage: UNK, 1X/DAY (EVERY NIGHT)

REACTIONS (3)
  - Dysphagia [Unknown]
  - Foreign body in respiratory tract [Unknown]
  - Product use complaint [Unknown]
